FAERS Safety Report 5213524-4 (Version None)
Quarter: 2007Q1

REPORT INFORMATION
  Report Type: 
  Country: None (occurrence: None)
  Receive Date: 20070119
  Receipt Date: 20070110
  Transmission Date: 20070707
  Serious: Yes (Death)
  Sender: FDA-Public Use
  Company Number: FR-ROCHE-474367

PATIENT
  Age: 45 Year
  Sex: Male

DRUGS (4)
  1. RIBAVIRIN [Suspect]
     Route: 065
     Dates: start: 20021215
  2. RIBAVIRIN [Suspect]
     Route: 065
     Dates: end: 20030711
  3. INTERFERON ALFA-2B [Suspect]
     Route: 065
     Dates: start: 20021215
  4. INTERFERON ALFA-2B [Suspect]
     Dosage: THE LAST DOSE WAS ON 04 JULY 2003
     Route: 065

REACTIONS (11)
  - CARDIOGENIC SHOCK [None]
  - CARDIOMYOPATHY [None]
  - DYSPNOEA EXERTIONAL [None]
  - EJECTION FRACTION DECREASED [None]
  - FATIGUE [None]
  - NEUTROPENIA [None]
  - PLEURAL EFFUSION [None]
  - RED BLOOD CELL COUNT DECREASED [None]
  - VENTRICULAR HYPOKINESIA [None]
  - WEIGHT DECREASED [None]
  - WHITE BLOOD CELL COUNT DECREASED [None]
